FAERS Safety Report 22588992 (Version 4)
Quarter: 2023Q2

REPORT INFORMATION
  Report Type: Report from Study
  Country: US (occurrence: US)
  Receive Date: 20230612
  Receipt Date: 20230630
  Transmission Date: 20230722
  Serious: Yes (Hospitalization)
  Sender: FDA-Public Use
  Company Number: US-002147023-NVSC2023US131118

PATIENT
  Sex: Female
  Weight: 51.7 kg

DRUGS (5)
  1. TREPROSTINIL [Suspect]
     Active Substance: TREPROSTINIL
     Indication: Pulmonary arterial hypertension
     Dosage: 55 NG/KG/MIN, CONT
     Route: 042
     Dates: start: 20220316
  2. TREPROSTINIL [Suspect]
     Active Substance: TREPROSTINIL
     Dosage: 63 NG/KG/MIN, CONT
     Route: 065
  3. OPSUMIT [Concomitant]
     Active Substance: MACITENTAN
     Indication: Product used for unknown indication
     Dosage: UNK
     Route: 065
  4. SILDENAFIL CITRATE [Concomitant]
     Active Substance: SILDENAFIL CITRATE
     Indication: Product used for unknown indication
     Dosage: UNK
     Route: 065
  5. VELETRI [Concomitant]
     Active Substance: EPOPROSTENOL
     Indication: Product used for unknown indication
     Dosage: UNK
     Route: 065

REACTIONS (5)
  - Lung disorder [Unknown]
  - Cardiac disorder [Unknown]
  - Headache [Unknown]
  - Dyspnoea [Unknown]
  - Pulmonary arterial hypertension [Unknown]
